FAERS Safety Report 5092205-4 (Version None)
Quarter: 2006Q3

REPORT INFORMATION
  Report Type: 
  Country: None (occurrence: None)
  Receive Date: 20060828
  Receipt Date: 20060828
  Transmission Date: 20061208
  Serious: No
  Sender: FDA-Public Use
  Company Number: None

PATIENT
  Age: 54 Year
  Sex: Female
  Weight: 73.9363 kg

DRUGS (2)
  1. ZYPREXA [Suspect]
     Indication: HALLUCINATION
     Dosage: 10 MG ONCE A DAY PO
     Route: 048
     Dates: start: 20040201, end: 20050601
  2. ZYPREXA [Suspect]
     Indication: PSYCHOTIC DISORDER
     Dosage: 10 MG ONCE A DAY PO
     Route: 048
     Dates: start: 20040201, end: 20050601

REACTIONS (1)
  - DIABETES MELLITUS [None]
